FAERS Safety Report 15574343 (Version 2)
Quarter: 2020Q1

REPORT INFORMATION
  Report Type: Report from Study
  Country: US (occurrence: US)
  Receive Date: 20181101
  Receipt Date: 20200106
  Transmission Date: 20200409
  Serious: Yes (Disabling)
  Sender: FDA-Public Use
  Company Number: US-SA-2018SA300492

PATIENT
  Age: 54 Year
  Sex: Female

DRUGS (3)
  1. DUPILUMAB [Suspect]
     Active Substance: DUPILUMAB
     Indication: NEURODERMATITIS
     Dosage: 300 MG, QOW`
     Route: 058
     Dates: start: 2018, end: 2019
  2. DUPILUMAB [Suspect]
     Active Substance: DUPILUMAB
     Indication: DERMATITIS ATOPIC
     Dosage: 600 MG, 1X
     Route: 058
     Dates: start: 20181014, end: 20191014
  3. VITAMIN B12 [Concomitant]
     Active Substance: CYANOCOBALAMIN

REACTIONS (10)
  - Eye pain [Recovering/Resolving]
  - Lacrimation increased [Unknown]
  - Impaired work ability [Recovered/Resolved]
  - Eye irritation [Recovering/Resolving]
  - Dry eye [Recovering/Resolving]
  - Crying [Recovering/Resolving]
  - Impaired driving ability [Recovered/Resolved]
  - Condition aggravated [Recovering/Resolving]
  - Eye pruritus [Recovered/Resolved]
  - Visual impairment [Recovered/Resolved]

NARRATIVE: CASE EVENT DATE: 2018
